FAERS Safety Report 8541471-9 (Version None)
Quarter: 2012Q3

REPORT INFORMATION
  Report Type: 
  Country: None (occurrence: None)
  Receive Date: 20120726
  Receipt Date: 20120725
  Transmission Date: 20120928
  Serious: Yes (Death)
  Sender: FDA-Public Use
  Company Number: AU-ABBOTT-12P-008-0960162-00

PATIENT
  Sex: Male

DRUGS (1)
  1. LEUPROLIDE ACETATE [Suspect]
     Indication: PRODUCT USED FOR UNKNOWN INDICATION
     Dosage: 1 IN 4 MONTHS, HAD 2 INJECTIONS
     Dates: start: 20111116

REACTIONS (2)
  - MYOCARDIAL INFARCTION [None]
  - HOT FLUSH [None]
